FAERS Safety Report 11548237 (Version 1)
Quarter: 2015Q3

REPORT INFORMATION
  Report Type: Spontaneous
  Country: US (occurrence: US)
  Receive Date: 20150924
  Receipt Date: 20150924
  Transmission Date: 20151125
  Serious: No
  Sender: FDA-Public Use
  Company Number: US-INCYTE CORPORATION-2015IN001000

PATIENT

DRUGS (2)
  1. JAKAFI [Suspect]
     Active Substance: RUXOLITINIB
     Indication: POLYCYTHAEMIA VERA
     Dosage: NOT SPECIFIED
     Route: 048
  2. ANAGRELIDE [Concomitant]
     Active Substance: ANAGRELIDE

REACTIONS (1)
  - Platelet count increased [Unknown]
